FAERS Safety Report 15267396 (Version 1)
Quarter: 2018Q3

REPORT INFORMATION
  Report Type: Spontaneous
  Country: MY (occurrence: MY)
  Receive Date: 20180811
  Receipt Date: 20180811
  Transmission Date: 20181010
  Serious: Yes (Other)
  Sender: FDA-Public Use
  Company Number: MY-ROCHE-2165656

PATIENT
  Age: 40 Year
  Sex: Male
  Weight: 99 kg

DRUGS (11)
  1. METHOTREXATE. [Concomitant]
     Active Substance: METHOTREXATE
     Indication: RHEUMATOID ARTHRITIS
     Route: 048
     Dates: start: 2009
  2. BISOPROLOL [Concomitant]
     Active Substance: BISOPROLOL
     Indication: PULMONARY HYPERTENSION
     Route: 048
     Dates: start: 2015
  3. FRUSEMIDE [Concomitant]
     Active Substance: FUROSEMIDE
     Indication: PULMONARY HYPERTENSION
     Route: 048
     Dates: start: 2015
  4. ACTEMRA [Concomitant]
     Active Substance: TOCILIZUMAB
     Dosage: 6?8MG/KG.
     Route: 042
     Dates: start: 2013
  5. BISOPROLOL [Concomitant]
     Active Substance: BISOPROLOL
     Indication: ATRIAL SEPTAL DEFECT
  6. SILDENAFIL. [Concomitant]
     Active Substance: SILDENAFIL
     Indication: PULMONARY HYPERTENSION
     Route: 048
     Dates: start: 2015
  7. METFORMIN [Concomitant]
     Active Substance: METFORMIN HYDROCHLORIDE
     Indication: TYPE 2 DIABETES MELLITUS
     Dosage: ON
     Route: 048
     Dates: start: 2009
  8. FRUSEMIDE [Concomitant]
     Active Substance: FUROSEMIDE
     Indication: ATRIAL SEPTAL DEFECT
  9. ACTEMRA [Concomitant]
     Active Substance: TOCILIZUMAB
     Route: 042
     Dates: start: 201708
  10. ACTEMRA [Suspect]
     Active Substance: TOCILIZUMAB
     Indication: RHEUMATOID ARTHRITIS
     Route: 058
     Dates: start: 20170615, end: 20170803
  11. SILDENAFIL. [Concomitant]
     Active Substance: SILDENAFIL
     Indication: ATRIAL SEPTAL DEFECT

REACTIONS (4)
  - Rheumatoid arthritis [Recovered/Resolved]
  - Red blood cell sedimentation rate increased [Unknown]
  - Drug ineffective [Unknown]
  - C-reactive protein increased [Unknown]

NARRATIVE: CASE EVENT DATE: 20170630
